FAERS Safety Report 5712570-1 (Version None)
Quarter: 2008Q2

REPORT INFORMATION
  Report Type: 
  Country: None (occurrence: None)
  Receive Date: 20080422
  Receipt Date: 20080414
  Transmission Date: 20081010
  Serious: Yes (Death)
  Sender: FDA-Public Use
  Company Number: GB-AVENTIS-200811608EU

PATIENT
  Age: 60 Year
  Sex: Female

DRUGS (2)
  1. INDAPAMIDE [Suspect]
     Dosage: DOSE: UNK
     Route: 048
  2. LARIAM [Suspect]
     Indication: MALARIA PROPHYLAXIS
     Dosage: DOSE: UNK
     Route: 048

REACTIONS (1)
  - DEATH [None]
